FAERS Safety Report 17427599 (Version 3)
Quarter: 2020Q2

REPORT INFORMATION
  Report Type: Spontaneous
  Country: US (occurrence: US)
  Receive Date: 20200217
  Receipt Date: 20200515
  Transmission Date: 20200713
  Serious: Yes (Other)
  Sender: FDA-Public Use
  Company Number: US-LEXICON PHARMACEUTICALS, INC-20-1606-00102

PATIENT
  Age: 62 Year
  Sex: Male

DRUGS (2)
  1. XERMELO [Suspect]
     Active Substance: TELOTRISTAT ETHYL
     Indication: NEUROENDOCRINE TUMOUR
     Dates: start: 20200124
  2. OCTREOTIDE. [Concomitant]
     Active Substance: OCTREOTIDE

REACTIONS (11)
  - Fatigue [Not Recovered/Not Resolved]
  - Vision blurred [Unknown]
  - Lethargy [Unknown]
  - Disease progression [Unknown]
  - Abdominal pain [Not Recovered/Not Resolved]
  - Hepatic enzyme increased [Unknown]
  - Liver injury [Not Recovered/Not Resolved]
  - Dizziness [Unknown]
  - Chromaturia [Unknown]
  - Chronic obstructive pulmonary disease [Unknown]
  - Headache [Recovered/Resolved]
